FAERS Safety Report 21109596 (Version 1)
Quarter: 2022Q3

REPORT INFORMATION
  Report Type: Spontaneous
  Country: IT (occurrence: IT)
  Receive Date: 20220721
  Receipt Date: 20220721
  Transmission Date: 20221027
  Serious: Yes (Other)
  Sender: FDA-Public Use
  Company Number: None

PATIENT
  Age: 54 Year
  Sex: Male

DRUGS (3)
  1. GEMCITABINE [Suspect]
     Active Substance: GEMCITABINE
     Indication: Cutaneous T-cell lymphoma
     Dosage: 1.908 MG/CYCLIC (THREE TREATMENT COURSES IN TOTAL)
     Route: 042
     Dates: start: 20200127, end: 20200630
  2. ALLOPURINOL [Suspect]
     Active Substance: ALLOPURINOL
     Indication: Gout
     Dosage: 300 MG, Q24H(300 MG /DIE)
     Route: 048
     Dates: start: 20220620, end: 20220627
  3. OXALIPLATIN [Suspect]
     Active Substance: OXALIPLATIN
     Indication: Cutaneous T-cell lymphoma
     Dosage: 171,72 MG/CYCLIC ((THREE TREATMENT COURSES IN TOTAL))
     Route: 042
     Dates: start: 20200127, end: 20200630

REACTIONS (3)
  - Chronic myelomonocytic leukaemia [Not Recovered/Not Resolved]
  - Urticaria [Recovering/Resolving]
  - Pruritus [Recovering/Resolving]

NARRATIVE: CASE EVENT DATE: 20201102
